FAERS Safety Report 9296606 (Version 1)
Quarter: 2013Q2

REPORT INFORMATION
  Report Type: Spontaneous
  Country: ES (occurrence: ES)
  Receive Date: 20130517
  Receipt Date: 20130517
  Transmission Date: 20140414
  Serious: Yes (Life-Threatening, Hospitalization)
  Sender: FDA-Public Use
  Company Number: PHHY2013ES049406

PATIENT
  Age: 66 Year
  Sex: Male

DRUGS (13)
  1. ATORVASTATIN [Suspect]
     Dosage: 80 MG, DAILY
     Dates: start: 20121105
  2. BISOPROLOL [Suspect]
     Dosage: 50 MG, AT ONCE
     Dates: start: 20121105
  3. PANTOPRAZOLE SANDOZ [Suspect]
     Dosage: 280 MG, AT ONCE
     Dates: start: 20121105
  4. TORASEMIDE [Suspect]
     Dosage: 150 MG, AT ONCE
     Dates: start: 20121105
  5. LIBERTEK [Suspect]
     Indication: CHRONIC OBSTRUCTIVE PULMONARY DISEASE
     Dosage: 500 UG, QD
     Dates: start: 201211
  6. LIBERTEK [Suspect]
     Dosage: 500 MG, BID
     Dates: start: 201211
  7. TRANXILIUM [Suspect]
     Dosage: 60 MG, AT ONCE
     Dates: start: 20121105
  8. ADIRO [Suspect]
     Dosage: 600 MG, AT ONCE
     Dates: start: 20121105
  9. NOLOTIL /SPA/ [Suspect]
     Dosage: 7 DF, AT ONCE
     Dates: start: 20121105
  10. CILOSTAZOL [Suspect]
     Dosage: 2.8 G, AT ONCE
     Dates: start: 20121105
  11. ATROVENT [Concomitant]
     Indication: CHRONIC OBSTRUCTIVE PULMONARY DISEASE
     Dosage: 3 DF, TID
  12. PLUSVENT [Concomitant]
     Indication: CHRONIC OBSTRUCTIVE PULMONARY DISEASE
     Dosage: 2 DF, BID
  13. SALBUTAMOL [Concomitant]
     Indication: CHRONIC OBSTRUCTIVE PULMONARY DISEASE
     Dosage: 1 DF, AS REQUIRED

REACTIONS (6)
  - Suicide attempt [Unknown]
  - Confusional state [Unknown]
  - Hypotension [Unknown]
  - Drug administration error [Unknown]
  - Depression [Unknown]
  - Intentional overdose [Unknown]
